FAERS Safety Report 4374587-1 (Version None)
Quarter: 2004Q2

REPORT INFORMATION
  Report Type: 
  Country: None (occurrence: None)
  Receive Date: 20040609
  Receipt Date: 20040524
  Transmission Date: 20050107
  Serious: Yes (Other)
  Sender: FDA-Public Use
  Company Number: JP-MERCK-0405USA01905

PATIENT
  Age: 78 Year
  Sex: Female
  Weight: 60 kg

DRUGS (5)
  1. BEZAFIBRATE [Suspect]
     Indication: HYPERLIPIDAEMIA
     Route: 048
     Dates: start: 19990309, end: 20040404
  2. FLUTICASONE PROPIONATE [Concomitant]
     Indication: ASTHMA
     Route: 065
     Dates: start: 20031121
  3. COZAAR [Suspect]
     Indication: HYPERTENSION
     Route: 048
     Dates: start: 20020301, end: 20040409
  4. TULOBUTEROL [Concomitant]
     Indication: ASTHMA
     Route: 065
     Dates: start: 19990609
  5. ZAFIRLUKAST [Concomitant]
     Indication: ASTHMA
     Route: 065
     Dates: start: 20010618

REACTIONS (5)
  - ANAEMIA [None]
  - ANOREXIA [None]
  - CYSTITIS NONINFECTIVE [None]
  - RENAL FAILURE ACUTE [None]
  - RHABDOMYOLYSIS [None]
